FAERS Safety Report 15642017 (Version 5)
Quarter: 2019Q2

REPORT INFORMATION
  Report Type: Report from Study
  Country: US (occurrence: US)
  Receive Date: 20181121
  Receipt Date: 20190419
  Transmission Date: 20190711
  Serious: Yes (Hospitalization)
  Sender: FDA-Public Use
  Company Number: PHEH2018US048480

PATIENT
  Sex: Male

DRUGS (3)
  1. ENTRESTO [Suspect]
     Active Substance: SACUBITRIL\VALSARTAN
     Dosage: 1 DF (SACUBITRIL 24 MG AND VALSARTAN 26 MG), BID
     Route: 048
  2. ENTRESTO [Suspect]
     Active Substance: SACUBITRIL\VALSARTAN
     Dosage: 1 DF(SACUBITRIL 49 MG AND VALSARTAN 51 MG), BID
     Route: 048
  3. ENTRESTO [Suspect]
     Active Substance: SACUBITRIL\VALSARTAN
     Indication: PRODUCT USED FOR UNKNOWN INDICATION
     Dosage: 1 DF (SACUBITRIL 24 MG AND VALSARTAN 26 MG), BID
     Route: 048

REACTIONS (15)
  - Malaise [Unknown]
  - Disease recurrence [Unknown]
  - Hypoacusis [Unknown]
  - Drug ineffective [Unknown]
  - Dizziness [Unknown]
  - Hypertension [Unknown]
  - Hypotension [Unknown]
  - Pruritus [Unknown]
  - Echocardiogram abnormal [Unknown]
  - Nausea [Unknown]
  - Dyspnoea [Unknown]
  - Fluid retention [Unknown]
  - Depression [Unknown]
  - Asthenia [Unknown]
  - Hypokinesia [Unknown]
